FAERS Safety Report 7554024-6 (Version None)
Quarter: 2011Q2

REPORT INFORMATION
  Report Type: 
  Country: None (occurrence: None)
  Receive Date: 20110614
  Receipt Date: 20110614
  Transmission Date: 20111010
  Serious: Yes (Hospitalization)
  Sender: FDA-Public Use
  Company Number: None

PATIENT
  Age: 73 Year
  Sex: Female

DRUGS (9)
  1. OMEPRAZOLE [Concomitant]
  2. FLONASE [Concomitant]
  3. GLIPIZIDE [Concomitant]
  4. LOVASTATIN [Concomitant]
  5. LISINOPRIL [Concomitant]
  6. EPOGEN [Concomitant]
  7. METFORMIN HCL [Concomitant]
  8. NORTRIPTYLINE HCL [Concomitant]
  9. REVLIMID [Suspect]
     Indication: MULTIPLE MYELOMA
     Dosage: 10MG DAILY ORALLY
     Route: 048
     Dates: start: 20110430, end: 20110508

REACTIONS (2)
  - RASH [None]
  - BLISTER [None]
